FAERS Safety Report 17576645 (Version 2)
Quarter: 2020Q2

REPORT INFORMATION
  Report Type: Spontaneous
  Country: US (occurrence: US)
  Receive Date: 20200324
  Receipt Date: 20200402
  Transmission Date: 20200713
  Serious: No
  Sender: FDA-Public Use
  Company Number: US-HORIZON-PRE-0092-2020

PATIENT
  Age: 48 Year
  Sex: Female
  Weight: 109.8 kg

DRUGS (4)
  1. SILDENAFIL CITRATE. [Concomitant]
     Active Substance: SILDENAFIL CITRATE
  2. PREDNISONE. [Suspect]
     Active Substance: PREDNISONE
     Indication: PRODUCT USED FOR UNKNOWN INDICATION
  3. OPSUMIT [Concomitant]
     Active Substance: MACITENTAN
  4. ORENITRAM [Suspect]
     Active Substance: TREPROSTINIL
     Indication: PULMONARY ARTERIAL HYPERTENSION
     Dosage: 0.25MG AND 2.5MG, AND CURRENT DOSE WAS 3.125MG, ORAL (PO) EVERY 8 HOURS (Q8H)
     Route: 048
     Dates: start: 20191002

REACTIONS (2)
  - Foot fracture [Recovered/Resolved]
  - Weight increased [Not Recovered/Not Resolved]
